FAERS Safety Report 7494370-8 (Version None)
Quarter: 2011Q2

REPORT INFORMATION
  Report Type: 
  Country: None (occurrence: None)
  Receive Date: 20110520
  Receipt Date: 20110513
  Transmission Date: 20111010
  Serious: Yes (Hospitalization, Other)
  Sender: FDA-Public Use
  Company Number: AU-MERCK-1104USA00392

PATIENT
  Age: 60 Year
  Sex: Female
  Weight: 92 kg

DRUGS (14)
  1. NOVOLOG [Concomitant]
     Route: 030
  2. ASPIRIN [Concomitant]
     Route: 048
  3. PAROXETINE HCL [Concomitant]
     Route: 048
  4. ISOPTIN [Concomitant]
     Route: 048
  5. PANADOL OSTEO [Concomitant]
     Route: 048
  6. LEVEMIR [Concomitant]
     Route: 058
  7. VALIUM [Concomitant]
     Route: 048
  8. MIRTAZAPINE [Concomitant]
     Route: 048
  9. LEVOTHYROXINE SODIUM [Concomitant]
     Route: 048
  10. DIABEN (GLYBURIDE) [Concomitant]
     Indication: DIABETES MELLITUS
     Route: 065
  11. PANTOPRAZOLE [Concomitant]
     Route: 048
  12. VYTORIN [Suspect]
     Route: 048
     Dates: start: 20100811, end: 20110222
  13. SODIUM BICARBONATE [Concomitant]
     Route: 048
  14. REFRESH LIQUIGEL [Concomitant]
     Route: 047

REACTIONS (6)
  - RENAL FAILURE ACUTE [None]
  - MYALGIA [None]
  - FEMUR FRACTURE [None]
  - FALL [None]
  - RHABDOMYOLYSIS [None]
  - BLOOD CREATINE PHOSPHOKINASE INCREASED [None]
